FAERS Safety Report 16340254 (Version 2)
Quarter: 2019Q2

REPORT INFORMATION
  Report Type: Report from Study
  Country: BE (occurrence: BE)
  Receive Date: 20190522
  Receipt Date: 20190523
  Transmission Date: 20190711
  Serious: Yes (Hospitalization)
  Sender: FDA-Public Use
  Company Number: BE-ROCHE-2321798

PATIENT
  Age: 72 Year
  Sex: Male

DRUGS (33)
  1. OBINUTUZUMAB. [Suspect]
     Active Substance: OBINUTUZUMAB
     Route: 042
     Dates: start: 20160518, end: 20160518
  2. ACALABRUTINIB. [Suspect]
     Active Substance: ACALABRUTINIB
     Route: 048
     Dates: start: 20170713, end: 20170815
  3. ACALABRUTINIB. [Suspect]
     Active Substance: ACALABRUTINIB
     Route: 048
     Dates: start: 20170817, end: 20170924
  4. ACALABRUTINIB. [Suspect]
     Active Substance: ACALABRUTINIB
     Route: 048
     Dates: start: 20171005, end: 20171227
  5. ACALABRUTINIB. [Suspect]
     Active Substance: ACALABRUTINIB
     Route: 048
     Dates: start: 20190108, end: 20190108
  6. ACALABRUTINIB. [Suspect]
     Active Substance: ACALABRUTINIB
     Route: 048
     Dates: start: 20190131, end: 20190131
  7. ACALABRUTINIB. [Suspect]
     Active Substance: ACALABRUTINIB
     Route: 048
     Dates: start: 20190221
  8. DULOXETINE. [Concomitant]
     Active Substance: DULOXETINE
     Indication: DEPRESSION
     Route: 065
     Dates: start: 20170321
  9. FLUOXETINE [Concomitant]
     Active Substance: FLUOXETINE HYDROCHLORIDE
     Indication: DEPRESSION
     Route: 065
     Dates: start: 20130422, end: 20160208
  10. ENTEROL [SACCHAROMYCES BOULARDII] [Concomitant]
     Indication: DIARRHOEA
     Route: 065
     Dates: start: 20170420, end: 20170508
  11. OBINUTUZUMAB. [Suspect]
     Active Substance: OBINUTUZUMAB
     Indication: CHRONIC LYMPHOCYTIC LEUKAEMIA
     Route: 042
     Dates: start: 20151228, end: 20151228
  12. ACALABRUTINIB. [Suspect]
     Active Substance: ACALABRUTINIB
     Indication: CHRONIC LYMPHOCYTIC LEUKAEMIA
     Route: 048
     Dates: start: 20151130, end: 20170419
  13. ACALABRUTINIB. [Suspect]
     Active Substance: ACALABRUTINIB
     Route: 048
     Dates: start: 20170816, end: 20170816
  14. DAFALGAN [Concomitant]
     Active Substance: ACETAMINOPHEN
     Indication: PREMEDICATION
     Route: 065
     Dates: start: 20160418, end: 20160418
  15. SOLU-MEDROL [Concomitant]
     Active Substance: METHYLPREDNISOLONE SODIUM SUCCINATE
     Route: 065
     Dates: start: 20161228, end: 20161228
  16. ZANIDIP [Concomitant]
     Active Substance: LERCANIDIPINE HYDROCHLORIDE
     Indication: HYPERTENSION
     Route: 065
     Dates: start: 20180322
  17. AMOXICLAV [Concomitant]
     Active Substance: AMOXICILLIN\CLAVULANATE POTASSIUM
     Indication: UPPER RESPIRATORY TRACT INFECTION
     Route: 065
     Dates: start: 20190101, end: 20190101
  18. ACALABRUTINIB. [Suspect]
     Active Substance: ACALABRUTINIB
     Route: 048
     Dates: start: 20170420, end: 20170712
  19. ACALABRUTINIB. [Suspect]
     Active Substance: ACALABRUTINIB
     Route: 048
     Dates: start: 20170930, end: 20171004
  20. VASEXTEN [Concomitant]
     Active Substance: BARNIDIPINE HYDROCHLORIDE
     Indication: HYPERTENSION
     Route: 065
     Dates: start: 20130422
  21. ATORVASTATIN [Concomitant]
     Active Substance: ATORVASTATIN
     Indication: HYPERCHOLESTEROLAEMIA
     Route: 065
     Dates: start: 20130422
  22. ACALABRUTINIB. [Suspect]
     Active Substance: ACALABRUTINIB
     Route: 048
     Dates: start: 20171228, end: 20180120
  23. ACALABRUTINIB. [Suspect]
     Active Substance: ACALABRUTINIB
     Route: 048
     Dates: start: 20190201, end: 20190220
  24. ALLOPURINOL. [Concomitant]
     Active Substance: ALLOPURINOL
     Indication: PROPHYLAXIS
     Route: 065
     Dates: start: 20130422, end: 20180614
  25. ACALABRUTINIB. [Suspect]
     Active Substance: ACALABRUTINIB
     Route: 048
     Dates: start: 20180121, end: 20180121
  26. TERAZOSIN [Concomitant]
     Active Substance: TERAZOSIN\TERAZOSIN HYDROCHLORIDE
     Indication: BENIGN PROSTATIC HYPERPLASIA
     Route: 065
     Dates: start: 20130422
  27. CETIRIZINE [Concomitant]
     Active Substance: CETIRIZINE HYDROCHLORIDE
     Indication: ALLERGY PROPHYLAXIS
     Route: 065
     Dates: start: 2013
  28. ACALABRUTINIB. [Suspect]
     Active Substance: ACALABRUTINIB
     Route: 048
     Dates: start: 20170925, end: 20170929
  29. ACALABRUTINIB. [Suspect]
     Active Substance: ACALABRUTINIB
     Route: 048
     Dates: start: 20190109, end: 20190130
  30. ASAFLOW [Concomitant]
     Active Substance: ASPIRIN
     Indication: CARDIAC VALVE DISEASE
     Route: 065
     Dates: start: 20181127
  31. ZYRTEC [Concomitant]
     Active Substance: CETIRIZINE HYDROCHLORIDE
     Route: 065
     Dates: start: 20160307, end: 20160418
  32. MOTILIUM [Concomitant]
     Active Substance: DOMPERIDONE
     Indication: NAUSEA
     Route: 065
     Dates: start: 20170420, end: 20170508
  33. MEBEVERINE [Concomitant]
     Active Substance: MEBEVERINE
     Indication: DIARRHOEA
     Route: 065
     Dates: start: 20170420, end: 20170508

REACTIONS (1)
  - Chest pain [Recovered/Resolved]

NARRATIVE: CASE EVENT DATE: 20181119
